FAERS Safety Report 18955456 (Version 1)
Quarter: 2021Q1

REPORT INFORMATION
  Report Type: Report from Study
  Country: US (occurrence: US)
  Receive Date: 20210301
  Receipt Date: 20210301
  Transmission Date: 20210420
  Serious: Yes (Life-Threatening, Other)
  Sender: FDA-Public Use
  Company Number: US-BAYER-2021-086329

PATIENT
  Age: 76 Year
  Sex: Male
  Weight: 70.7 kg

DRUGS (3)
  1. RIVAROXABAN [Suspect]
     Active Substance: RIVAROXABAN
     Dosage: 48.5 MG
  2. ASPIRIN 81 MG [Suspect]
     Active Substance: ASPIRIN
     Dosage: 81 MG
  3. CLOPIDOGREL [Suspect]
     Active Substance: CLOPIDOGREL BISULFATE
     Dosage: UNK

REACTIONS (3)
  - Haemorrhage intracranial [None]
  - Subdural haematoma [None]
  - Labelled drug-drug interaction medication error [None]
